FAERS Safety Report 4377750-9 (Version None)
Quarter: 2004Q2

REPORT INFORMATION
  Report Type: 
  Country: None (occurrence: None)
  Receive Date: 20040615
  Receipt Date: 20040609
  Transmission Date: 20050107
  Serious: Yes (Other)
  Sender: FDA-Public Use
  Company Number: US-MERCK-0406USA01330

PATIENT

DRUGS (2)
  1. [THERAPY UNSPECIFIED] [Concomitant]
     Route: 065
  2. ZETIA [Suspect]
     Route: 048

REACTIONS (1)
  - ASPARTATE AMINOTRANSFERASE INCREASED [None]
